FAERS Safety Report 14997061 (Version 2)
Quarter: 2020Q3

REPORT INFORMATION
  Report Type: Report from Study
  Country: US (occurrence: US)
  Receive Date: 20180611
  Receipt Date: 20180720
  Transmission Date: 20201105
  Serious: No
  Sender: FDA-Public Use
  Company Number: US-ASTRAZENECA-2018SE75617

PATIENT
  Age: 27909 Day
  Sex: Female

DRUGS (25)
  1. SELUMETINIB. [Suspect]
     Active Substance: SELUMETINIB
     Indication: NEOPLASM MALIGNANT
     Route: 048
     Dates: start: 20160301, end: 20160307
  2. HYOSCYAMINE SULFATE. [Concomitant]
     Active Substance: HYOSCYAMINE SULFATE
     Indication: ABDOMINAL PAIN UPPER
     Dosage: AS REQUIRED
     Route: 048
     Dates: start: 201303
  3. MELATONIN [Concomitant]
     Active Substance: MELATONIN
     Indication: INSOMNIA
     Route: 048
     Dates: start: 201509
  4. BENEFIBER PLUS [Concomitant]
     Indication: CONSTIPATION
     Dosage: AS REQUIRED
     Dates: start: 201507
  5. ADVIL [Concomitant]
     Active Substance: IBUPROFEN
     Indication: PAIN
     Dosage: AS REQUIRED
     Route: 048
     Dates: start: 201510
  6. REFRESH ARTIFICAL TEARS [Concomitant]
     Indication: DRY EYE
     Route: 047
     Dates: start: 2011
  7. ZOFRAN [Concomitant]
     Active Substance: ONDANSETRON HYDROCHLORIDE
     Indication: NAUSEA
     Dosage: 4.0MG AS REQUIRED
     Route: 048
     Dates: start: 2015
  8. CLONAZEPAM. [Concomitant]
     Active Substance: CLONAZEPAM
     Indication: ANXIETY
     Route: 048
     Dates: start: 201507
  9. SELUMETINIB. [Suspect]
     Active Substance: SELUMETINIB
     Indication: NEOPLASM MALIGNANT
     Route: 048
     Dates: start: 20160209, end: 20160215
  10. SELUMETINIB. [Suspect]
     Active Substance: SELUMETINIB
     Indication: NEOPLASM MALIGNANT
     Route: 048
     Dates: start: 20160315, end: 20160321
  11. CREON [Concomitant]
     Active Substance: PANCRELIPASE AMYLASE\PANCRELIPASE LIPASE\PANCRELIPASE PROTEASE
     Indication: PANCREATIC FAILURE
     Route: 048
     Dates: start: 201503
  12. PROBIOTIC [Concomitant]
     Active Substance: PROBIOTICS NOS
     Indication: CONSTIPATION
     Route: 048
     Dates: start: 201509
  13. MARINOL [Concomitant]
     Active Substance: DRONABINOL
     Indication: INSOMNIA
     Route: 048
     Dates: start: 20160119
  14. MEDI4736 [Suspect]
     Active Substance: DURVALUMAB
     Indication: NEOPLASM MALIGNANT
     Route: 042
     Dates: end: 20160322
  15. SELUMETINIB. [Suspect]
     Active Substance: SELUMETINIB
     Indication: NEOPLASM MALIGNANT
     Route: 048
     Dates: start: 20160201, end: 20160201
  16. BACLOFEN. [Concomitant]
     Active Substance: BACLOFEN
     Indication: MYALGIA
     Route: 048
     Dates: start: 201307
  17. DEXILANT [Concomitant]
     Active Substance: DEXLANSOPRAZOLE
     Indication: DYSPEPSIA
     Route: 048
     Dates: start: 201303
  18. MUCINEX [Concomitant]
     Active Substance: GUAIFENESIN
     Indication: COUGH
     Route: 048
     Dates: start: 201509
  19. SELUMETINIB. [Suspect]
     Active Substance: SELUMETINIB
     Indication: NEOPLASM MALIGNANT
     Route: 048
     Dates: start: 20160112, end: 20160118
  20. METOCLOPRAMIDE. [Concomitant]
     Active Substance: METOCLOPRAMIDE
     Indication: DYSPEPSIA
     Route: 048
     Dates: start: 201403
  21. ALLERTEC [Concomitant]
     Active Substance: CETIRIZINE HYDROCHLORIDE
     Indication: MULTIPLE ALLERGIES
     Route: 048
     Dates: start: 201509
  22. SELUMETINIB. [Suspect]
     Active Substance: SELUMETINIB
     Indication: NEOPLASM MALIGNANT
     Route: 048
     Dates: start: 20160126, end: 20160131
  23. TESSALON [Concomitant]
     Active Substance: BENZONATATE
     Indication: COUGH
     Dosage: 100.0MG AS REQUIRED
     Route: 048
     Dates: start: 20151221
  24. LINZESS [Concomitant]
     Active Substance: LINACLOTIDE
     Indication: CONSTIPATION
     Route: 048
     Dates: start: 201303
  25. MARINOL [Concomitant]
     Active Substance: DRONABINOL
     Indication: DECREASED APPETITE
     Route: 048
     Dates: start: 20160119

REACTIONS (1)
  - Amylase increased [Recovered/Resolved]

NARRATIVE: CASE EVENT DATE: 20160218
